FAERS Safety Report 4839765-3 (Version None)
Quarter: 2005Q4

REPORT INFORMATION
  Report Type: 
  Country: None (occurrence: None)
  Receive Date: 20051129
  Receipt Date: 20050819
  Transmission Date: 20060501
  Serious: No
  Sender: FDA-Public Use
  Company Number: US-GLAXOSMITHKLINE-A0570950A

PATIENT
  Age: 58 Year
  Sex: Male

DRUGS (4)
  1. WELLBUTRIN SR [Suspect]
     Indication: DEPRESSION
     Route: 048
  2. WELLBUTRIN [Suspect]
     Indication: DEPRESSION
     Dosage: 75MG PER DAY
     Route: 048
     Dates: start: 20050819
  3. ATIVAN [Concomitant]
  4. VITAMINS [Concomitant]

REACTIONS (5)
  - AGITATION [None]
  - DISTURBANCE IN ATTENTION [None]
  - DRY MOUTH [None]
  - HEADACHE [None]
  - RESTLESSNESS [None]
